FAERS Safety Report 21512751 (Version 1)
Quarter: 2022Q4

REPORT INFORMATION
  Report Type: Spontaneous
  Country: US (occurrence: None)
  Receive Date: 20221026
  Receipt Date: 20221026
  Transmission Date: 20230112
  Serious: No
  Sender: FDA-Public Use
  Company Number: None

PATIENT
  Age: 59 Year
  Sex: Male
  Weight: 93.85 kg

DRUGS (9)
  1. KEYTRUDA [Suspect]
     Active Substance: PEMBROLIZUMAB
     Indication: Colon cancer
     Dosage: OTHER FREQUENCY : EVERY 3 WEEKS;?
     Route: 042
     Dates: end: 20221013
  2. ASPIRIN [Concomitant]
     Active Substance: ASPIRIN
  3. ATORVASTATIN CALCIUM [Concomitant]
     Active Substance: ATORVASTATIN CALCIUM
  4. FENOFIBRATE [Concomitant]
     Active Substance: FENOFIBRATE
  5. JANUVIA [Concomitant]
     Active Substance: SITAGLIPTIN PHOSPHATE
  6. METFORMIN [Concomitant]
     Active Substance: METFORMIN HYDROCHLORIDE
  7. OMEGA-3 ACIDS [Concomitant]
     Active Substance: OMEGA-3 FATTY ACIDS
  8. RYBELSUS [Concomitant]
     Active Substance: SEMAGLUTIDE
  9. VITAMIN D [Concomitant]
     Active Substance: VITAMIN D NOS

REACTIONS (1)
  - Disease progression [None]
